FAERS Safety Report 12132071 (Version 1)
Quarter: 2016Q1

REPORT INFORMATION
  Report Type: Spontaneous
  Country: US (occurrence: None)
  Receive Date: 20160229
  Receipt Date: 20160229
  Transmission Date: 20160526
  Serious: Yes (Hospitalization)
  Sender: FDA-Public Use
  Company Number: None

PATIENT
  Age: 84 Year
  Sex: Male
  Weight: 70.76 kg

DRUGS (10)
  1. TYLENOL [Concomitant]
     Active Substance: ACETAMINOPHEN
  2. MELATONIN [Concomitant]
     Active Substance: MELATONIN
  3. BRILINTA [Suspect]
     Active Substance: TICAGRELOR
     Dates: start: 20140407, end: 20140407
  4. FOSAMAX [Concomitant]
     Active Substance: ALENDRONATE SODIUM
  5. LORATADINE. [Concomitant]
     Active Substance: LORATADINE
  6. SYMBICORT [Concomitant]
     Active Substance: BUDESONIDE\FORMOTEROL FUMARATE DIHYDRATE
  7. CENTRUM [Concomitant]
     Active Substance: VITAMINS
  8. ASPIRIN. [Concomitant]
     Active Substance: ASPIRIN
  9. LIPITOR [Concomitant]
     Active Substance: ATORVASTATIN CALCIUM
  10. NITRO [Concomitant]
     Active Substance: NITROGLYCERIN

REACTIONS (1)
  - Dyspnoea [None]

NARRATIVE: CASE EVENT DATE: 20140407
